FAERS Safety Report 6263033-9 (Version None)
Quarter: 2009Q3

REPORT INFORMATION
  Report Type: 
  Country: None (occurrence: None)
  Receive Date: 20090708
  Receipt Date: 20090708
  Transmission Date: 20100115
  Serious: No
  Sender: FDA-Public Use
  Company Number: None

PATIENT
  Sex: Female
  Weight: 74.8435 kg

DRUGS (2)
  1. ANUCORT - HC 25 MG RECTAL SUPP. GTW LABORATORIES, INC. S. PLAINFIELD N [Suspect]
     Indication: PROCTALGIA
     Dosage: 25 MG 3 TIME A DAY RECTALLY
     Route: 054
     Dates: start: 20090526
  2. ANUCORT - HC 25 MG RECTAL SUPP. GTW LABORATORIES, INC. S. PLAINFIELD N [Suspect]
     Indication: PROCTALGIA
     Dosage: 25 MG 3 TIME A DAY RECTALLY
     Route: 054
     Dates: start: 20090621

REACTIONS (5)
  - ABDOMINAL PAIN [None]
  - ANORECTAL DISORDER [None]
  - MIDDLE INSOMNIA [None]
  - MUSCULOSKELETAL STIFFNESS [None]
  - VOMITING [None]
